FAERS Safety Report 14658009 (Version 2)
Quarter: 2018Q2

REPORT INFORMATION
  Report Type: Spontaneous
  Country: JP (occurrence: JP)
  Receive Date: 20180320
  Receipt Date: 20180416
  Transmission Date: 20180711
  Serious: Yes (Other)
  Sender: FDA-Public Use
  Company Number: JP-ORION CORPORATION ORION PHARMA-ENTC2018-0102

PATIENT
  Sex: Female

DRUGS (2)
  1. STALEVO [Suspect]
     Active Substance: CARBIDOPA\ENTACAPONE\LEVODOPA
     Dosage: 6 TABLETS OF L-100 (100-10-100 MG) AND 1 TABLET OF L-50 (50-5-100 MG)
     Route: 048
  2. STALEVO [Suspect]
     Active Substance: CARBIDOPA\ENTACAPONE\LEVODOPA
     Indication: PARKINSON^S DISEASE
     Dosage: 6 TABLETS OF L-100 (100-10-100 MG) AND 1 TABLET OF L-50 (50-5-100 MG)
     Route: 048
     Dates: end: 20180307

REACTIONS (1)
  - Breast cancer [Unknown]
